FAERS Safety Report 12504755 (Version 1)
Quarter: 2016Q2

REPORT INFORMATION
  Report Type: Report from Study
  Country: JP (occurrence: JP)
  Receive Date: 20160628
  Receipt Date: 20160628
  Transmission Date: 20160815
  Serious: Yes (Other)
  Sender: FDA-Public Use
  Company Number: PHHY2013JP173777

PATIENT
  Age: 73 Year
  Sex: Male

DRUGS (48)
  1. OFATUMUMAB [Suspect]
     Active Substance: OFATUMUMAB
     Indication: CHRONIC LYMPHOCYTIC LEUKAEMIA
     Dosage: 300 MG, QD
     Route: 041
     Dates: start: 20131121, end: 20131121
  2. OFATUMUMAB [Suspect]
     Active Substance: OFATUMUMAB
     Dosage: 2000 MG, QD
     Route: 041
     Dates: start: 20140508, end: 20140508
  3. POLARAMINE [Suspect]
     Active Substance: DEXCHLORPHENIRAMINE MALEATE
     Indication: PRODUCT USED FOR UNKNOWN INDICATION
     Dosage: 2 MG, BID
     Route: 048
     Dates: start: 20131121, end: 20131121
  4. POLARAMINE [Suspect]
     Active Substance: DEXCHLORPHENIRAMINE MALEATE
     Dosage: 4 MG, QD
     Route: 048
     Dates: start: 20140312, end: 20140312
  5. SAXIZON [Concomitant]
     Active Substance: HYDROCORTISONE SODIUM SUCCINATE
     Dosage: 100 MG, QD
     Route: 048
     Dates: start: 20131212, end: 20131212
  6. ACETAMINOPHEN. [Concomitant]
     Active Substance: ACETAMINOPHEN
     Dosage: 400 MG, QD
     Route: 048
     Dates: start: 20140409, end: 20140409
  7. OFATUMUMAB [Suspect]
     Active Substance: OFATUMUMAB
     Dosage: 2000 MG, QD
     Route: 041
     Dates: start: 20131212, end: 20131212
  8. POLARAMINE [Suspect]
     Active Substance: DEXCHLORPHENIRAMINE MALEATE
     Dosage: 4 MG, QD
     Route: 048
     Dates: start: 20131219, end: 20131219
  9. POLARAMINE [Suspect]
     Active Substance: DEXCHLORPHENIRAMINE MALEATE
     Dosage: 4 MG, QD
     Route: 048
     Dates: start: 20131226, end: 20131226
  10. POLARAMINE [Suspect]
     Active Substance: DEXCHLORPHENIRAMINE MALEATE
     Dosage: 4 MG, QD
     Route: 048
     Dates: start: 20140108, end: 20140108
  11. POLARAMINE [Suspect]
     Active Substance: DEXCHLORPHENIRAMINE MALEATE
     Dosage: 4 MG, QD
     Route: 048
     Dates: start: 20140115, end: 20140115
  12. POLARAMINE [Suspect]
     Active Substance: DEXCHLORPHENIRAMINE MALEATE
     Dosage: 4 MG, QD
     Route: 048
     Dates: start: 20140409, end: 20140409
  13. POLARAMINE [Suspect]
     Active Substance: DEXCHLORPHENIRAMINE MALEATE
     Dosage: 4 MG, QD
     Route: 048
     Dates: start: 20140508, end: 20140508
  14. SAXIZON [Concomitant]
     Active Substance: HYDROCORTISONE SODIUM SUCCINATE
     Dosage: 100 MG, QD
     Route: 048
     Dates: start: 20131128, end: 20131128
  15. ACETAMINOPHEN. [Concomitant]
     Active Substance: ACETAMINOPHEN
     Dosage: 400 MG, QD
     Route: 048
     Dates: start: 20131212, end: 20131212
  16. OFATUMUMAB [Suspect]
     Active Substance: OFATUMUMAB
     Dosage: 2000 MG, QD
     Route: 041
     Dates: start: 20131226, end: 20131226
  17. OFATUMUMAB [Suspect]
     Active Substance: OFATUMUMAB
     Dosage: 2000 MG, QD
     Route: 041
     Dates: start: 20140115, end: 20140115
  18. OFATUMUMAB [Suspect]
     Active Substance: OFATUMUMAB
     Dosage: 2000 MG, QD
     Route: 041
     Dates: start: 20140312, end: 20140312
  19. POLARAMINE [Suspect]
     Active Substance: DEXCHLORPHENIRAMINE MALEATE
     Dosage: 2 MG, BID
     Route: 048
     Dates: start: 20131128, end: 20131128
  20. SAXIZON [Concomitant]
     Active Substance: HYDROCORTISONE SODIUM SUCCINATE
     Dosage: 100 MG, QD
     Route: 048
     Dates: start: 20131205, end: 20131205
  21. SAXIZON [Concomitant]
     Active Substance: HYDROCORTISONE SODIUM SUCCINATE
     Dosage: 100 MG, QD
     Route: 048
     Dates: start: 20140108, end: 20140108
  22. ACETAMINOPHEN. [Concomitant]
     Active Substance: ACETAMINOPHEN
     Dosage: 400 MG, QD
     Route: 048
     Dates: start: 20131226, end: 20131226
  23. POLARAMINE [Suspect]
     Active Substance: DEXCHLORPHENIRAMINE MALEATE
     Dosage: 2 MG, BID
     Route: 048
     Dates: start: 20131205, end: 20131205
  24. POLARAMINE [Suspect]
     Active Substance: DEXCHLORPHENIRAMINE MALEATE
     Dosage: 4 MG, QD
     Route: 048
     Dates: start: 20140212, end: 20140212
  25. SAXIZON [Concomitant]
     Active Substance: HYDROCORTISONE SODIUM SUCCINATE
     Dosage: 100 MG, QD
     Route: 048
     Dates: start: 20140212, end: 20140212
  26. ACETAMINOPHEN. [Concomitant]
     Active Substance: ACETAMINOPHEN
     Indication: PREMEDICATION
     Dosage: 400 MG, QD
     Route: 048
     Dates: start: 20131121, end: 20131121
  27. OFATUMUMAB [Suspect]
     Active Substance: OFATUMUMAB
     Dosage: 2000 MG, QD
     Route: 041
     Dates: start: 20131205, end: 20131205
  28. SAXIZON [Concomitant]
     Active Substance: HYDROCORTISONE SODIUM SUCCINATE
     Indication: PREMEDICATION
     Dosage: 100 MG, QD
     Route: 048
     Dates: start: 20131121, end: 20131121
  29. SAXIZON [Concomitant]
     Active Substance: HYDROCORTISONE SODIUM SUCCINATE
     Dosage: 100 MG, QD
     Route: 048
     Dates: start: 20131226, end: 20131226
  30. SAXIZON [Concomitant]
     Active Substance: HYDROCORTISONE SODIUM SUCCINATE
     Dosage: 100 MG, QD
     Route: 048
     Dates: start: 20140409, end: 20140409
  31. SAXIZON [Concomitant]
     Active Substance: HYDROCORTISONE SODIUM SUCCINATE
     Dosage: 100 MG, QD
     Route: 048
     Dates: start: 20140508, end: 20140508
  32. ACETAMINOPHEN. [Concomitant]
     Active Substance: ACETAMINOPHEN
     Dosage: 400 MG, QD
     Route: 048
     Dates: start: 20131205, end: 20131205
  33. ACETAMINOPHEN. [Concomitant]
     Active Substance: ACETAMINOPHEN
     Dosage: 400 MG, QD
     Route: 048
     Dates: start: 20140508, end: 20140508
  34. OFATUMUMAB [Suspect]
     Active Substance: OFATUMUMAB
     Dosage: 2000 MG, QD
     Route: 041
     Dates: start: 20131219, end: 20131219
  35. OFATUMUMAB [Suspect]
     Active Substance: OFATUMUMAB
     Dosage: 2000 MG, QD
     Route: 041
     Dates: start: 20140108, end: 20140108
  36. OFATUMUMAB [Suspect]
     Active Substance: OFATUMUMAB
     Dosage: 2000 MG, QD
     Route: 041
     Dates: start: 20140212, end: 20140212
  37. OFATUMUMAB [Suspect]
     Active Substance: OFATUMUMAB
     Dosage: 2000 MG, QD
     Route: 041
     Dates: start: 20140409, end: 20140409
  38. POLARAMINE [Suspect]
     Active Substance: DEXCHLORPHENIRAMINE MALEATE
     Dosage: 4 MG, QD
     Route: 048
     Dates: start: 20131212, end: 20131212
  39. SAXIZON [Concomitant]
     Active Substance: HYDROCORTISONE SODIUM SUCCINATE
     Dosage: 100 MG, QD
     Route: 048
     Dates: start: 20140312, end: 20140312
  40. ACETAMINOPHEN. [Concomitant]
     Active Substance: ACETAMINOPHEN
     Dosage: 400 MG, QD
     Route: 048
     Dates: start: 20131219, end: 20131219
  41. OFATUMUMAB [Suspect]
     Active Substance: OFATUMUMAB
     Dosage: 2000 MG, QD
     Route: 041
     Dates: start: 20131128, end: 20131128
  42. ACETAMINOPHEN. [Concomitant]
     Active Substance: ACETAMINOPHEN
     Dosage: 400 MG, QD
     Route: 048
     Dates: start: 20131128, end: 20131128
  43. ACETAMINOPHEN. [Concomitant]
     Active Substance: ACETAMINOPHEN
     Dosage: 400 MG, QD
     Route: 048
     Dates: start: 20140212, end: 20140212
  44. SAXIZON [Concomitant]
     Active Substance: HYDROCORTISONE SODIUM SUCCINATE
     Dosage: 100 MG, QD
     Route: 048
     Dates: start: 20131219, end: 20131219
  45. SAXIZON [Concomitant]
     Active Substance: HYDROCORTISONE SODIUM SUCCINATE
     Dosage: 100 MG, QD
     Route: 048
     Dates: start: 20140115, end: 20140115
  46. ACETAMINOPHEN. [Concomitant]
     Active Substance: ACETAMINOPHEN
     Dosage: 400 MG, QD
     Route: 048
     Dates: start: 20140108, end: 20140108
  47. ACETAMINOPHEN. [Concomitant]
     Active Substance: ACETAMINOPHEN
     Dosage: 400 MG, QD
     Route: 048
     Dates: start: 20140115, end: 20140115
  48. ACETAMINOPHEN. [Concomitant]
     Active Substance: ACETAMINOPHEN
     Dosage: 400 MG, QD
     Route: 048
     Dates: start: 20140312, end: 20140312

REACTIONS (7)
  - Pyrexia [Recovered/Resolved]
  - Chills [Recovered/Resolved]
  - Feeling abnormal [Recovered/Resolved]
  - Urinary retention [Recovered/Resolved]
  - Urinary retention [Recovered/Resolved]
  - Oropharyngeal discomfort [Recovered/Resolved]
  - Hot flush [Recovered/Resolved]

NARRATIVE: CASE EVENT DATE: 20131121
